FAERS Safety Report 21299469 (Version 1)
Quarter: 2022Q3

REPORT INFORMATION
  Report Type: Spontaneous
  Country: US (occurrence: None)
  Receive Date: 20220906
  Receipt Date: 20220906
  Transmission Date: 20221026
  Serious: Yes (Hospitalization)
  Sender: FDA-Public Use
  Company Number: None

PATIENT

DRUGS (2)
  1. VERAPAMIL HCL [Suspect]
     Active Substance: VERAPAMIL HYDROCHLORIDE
     Route: 042
  2. ADRENALIN [Suspect]
     Active Substance: EPINEPHRINE
     Dosage: OTHER ROUTE : INTRAV INFUSION, INTRAMUS AND SUBCUT;?
     Route: 050

REACTIONS (3)
  - Wrong product stored [None]
  - Product dispensing error [None]
  - Intercepted product dispensing error [None]
